FAERS Safety Report 5926667-4 (Version None)
Quarter: 2008Q4

REPORT INFORMATION
  Report Type: 
  Country: None (occurrence: None)
  Receive Date: 20081022
  Receipt Date: 20081002
  Transmission Date: 20090506
  Serious: Yes (Other)
  Sender: FDA-Public Use
  Company Number: EC-ROCHE-591184

PATIENT
  Sex: Female
  Weight: 58 kg

DRUGS (2)
  1. XENICAL [Suspect]
     Indication: WEIGHT CONTROL
     Route: 048
     Dates: start: 20071101, end: 20080117
  2. SIBUTRAMINE HYDROCHLORIDE [Suspect]
     Indication: WEIGHT CONTROL
     Route: 048
     Dates: start: 20070101, end: 20080117

REACTIONS (1)
  - ANAEMIA [None]
